FAERS Safety Report 5859184-0 (Version None)
Quarter: 2008Q3

REPORT INFORMATION
  Report Type: 
  Country: None (occurrence: None)
  Receive Date: 20080826
  Receipt Date: 20080826
  Transmission Date: 20090109
  Serious: No
  Sender: FDA-Public Use
  Company Number: None

PATIENT
  Age: 46 Year
  Sex: Male
  Weight: 91.173 kg

DRUGS (1)
  1. ZYPREXA [Suspect]
     Indication: MOOD ALTERED
     Dosage: 10MG DAILY 2000 PO
     Route: 048
     Dates: start: 20080215, end: 20080616

REACTIONS (1)
  - LIVER FUNCTION TEST ABNORMAL [None]
